FAERS Safety Report 9171416 (Version 1)
Quarter: 2013Q1

REPORT INFORMATION
  Report Type: Spontaneous
  Country: BR (occurrence: None)
  Receive Date: 20130318
  Receipt Date: 20130318
  Transmission Date: 20140127
  Serious: Yes (Other)
  Sender: FDA-Public Use
  Company Number: None

PATIENT
  Age: 38 Year
  Sex: Male
  Weight: 93 kg

DRUGS (3)
  1. LISTERINE WHITENING [Suspect]
     Indication: DENTAL CARE
     Dosage: BUCCA 1
     Dates: start: 20130223, end: 20130226
  2. HYDROCHLOROTHIAZIDE [Concomitant]
  3. ALLOPURINOL [Concomitant]

REACTIONS (4)
  - Tongue haemorrhage [None]
  - Application site haemorrhage [None]
  - Oral discomfort [None]
  - Salivary hypersecretion [None]
